FAERS Safety Report 5786628-5 (Version None)
Quarter: 2008Q2

REPORT INFORMATION
  Report Type: 
  Country: None (occurrence: None)
  Receive Date: 20080624
  Receipt Date: 20080612
  Transmission Date: 20081010
  Serious: Yes (Other)
  Sender: FDA-Public Use
  Company Number: BR-PFIZER INC-2008050343

PATIENT
  Sex: Female

DRUGS (1)
  1. ZITHROMAX [Suspect]
     Route: 042
     Dates: start: 20080608, end: 20080608

REACTIONS (3)
  - ERYTHEMA [None]
  - FORMICATION [None]
  - HYPERAEMIA [None]
